FAERS Safety Report 5498805-1 (Version None)
Quarter: 2007Q4

REPORT INFORMATION
  Report Type: 
  Country: None (occurrence: None)
  Receive Date: 20071026
  Receipt Date: 20070911
  Transmission Date: 20080405
  Serious: No
  Sender: FDA-Public Use
  Company Number: A0665371A

PATIENT
  Sex: Male

DRUGS (9)
  1. ADVAIR DISKUS 100/50 [Suspect]
     Indication: CHRONIC OBSTRUCTIVE PULMONARY DISEASE
     Dosage: 2PUFF PER DAY
     Route: 055
     Dates: start: 20060701
  2. SPIRIVA [Concomitant]
  3. LOPRESSOR [Concomitant]
  4. PRILOSEC [Concomitant]
  5. EFFEXOR XR [Concomitant]
  6. CASODEX [Concomitant]
  7. ZOLADEX [Concomitant]
  8. ENALAPRIL MALEATE [Concomitant]
  9. ALBUTEROL [Concomitant]

REACTIONS (3)
  - DRUG INEFFECTIVE [None]
  - DYSPNOEA [None]
  - PHARMACEUTICAL PRODUCT COMPLAINT [None]
